FAERS Safety Report 8845930 (Version 2)
Quarter: 2012Q4

REPORT INFORMATION
  Report Type: 
  Country: US (occurrence: US)
  Receive Date: 20121017
  Receipt Date: 20121029
  Transmission Date: 20130627
  Serious: Yes (Other)
  Sender: FDA-Public Use
  Company Number: US-JNJFOC-20121007492

PATIENT
  Age: 86 None
  Sex: Female
  Weight: 72.58 kg

DRUGS (7)
  1. XARELTO [Suspect]
     Indication: CEREBROVASCULAR ACCIDENT PROPHYLAXIS
     Route: 048
     Dates: start: 20120701
  2. XARELTO [Suspect]
     Indication: ATRIAL FIBRILLATION
     Route: 048
     Dates: start: 20120701
  3. AMILORIDE [Suspect]
     Indication: HEART RATE
  4. AMILORIDE [Suspect]
     Indication: HEART RATE
     Dates: start: 201205, end: 20121001
  5. DIGOXIN [Suspect]
     Indication: PRODUCT USED FOR UNKNOWN INDICATION
     Dates: start: 201205, end: 20121001
  6. DIGOXIN [Suspect]
     Indication: PRODUCT USED FOR UNKNOWN INDICATION
  7. SYNTHROID [Concomitant]
     Indication: THYROIDECTOMY
     Route: 048
     Dates: start: 1985

REACTIONS (8)
  - Joint swelling [Unknown]
  - Rash [Not Recovered/Not Resolved]
  - Ocular icterus [Unknown]
  - Eye swelling [Not Recovered/Not Resolved]
  - Erythema [Not Recovered/Not Resolved]
  - Acne [Unknown]
  - Eye pruritus [Not Recovered/Not Resolved]
  - Skin irritation [Not Recovered/Not Resolved]
